FAERS Safety Report 12781256 (Version 1)
Quarter: 2016Q3

REPORT INFORMATION
  Report Type: Spontaneous
  Country: US (occurrence: US)
  Receive Date: 20160926
  Receipt Date: 20160926
  Transmission Date: 20161109
  Serious: No
  Sender: FDA-Public Use
  Company Number: US-GLENMARK PHARMACEUTICALS INC, USA.-2015GMK018972

PATIENT
  Age: 41 Year
  Sex: Male

DRUGS (9)
  1. MONTELUKAST [Suspect]
     Active Substance: MONTELUKAST SODIUM
     Dosage: 2 MG, UNK
     Route: 065
  2. MONTELUKAST [Suspect]
     Active Substance: MONTELUKAST SODIUM
     Dosage: 20 MG, UNK
     Route: 065
  3. MONTELUKAST [Suspect]
     Active Substance: MONTELUKAST SODIUM
     Dosage: 0.5 MG, UNK
     Route: 065
  4. MONTELUKAST [Suspect]
     Active Substance: MONTELUKAST SODIUM
     Dosage: 0.1 MG, UNK
     Route: 065
  5. MONTELUKAST [Suspect]
     Active Substance: MONTELUKAST SODIUM
     Dosage: 5 MG, UNK
     Route: 065
  6. MONTELUKAST [Suspect]
     Active Substance: MONTELUKAST SODIUM
     Indication: IMMUNE TOLERANCE INDUCTION
     Dosage: 10 MG, DAILY
     Route: 065
  7. MONTELUKAST [Suspect]
     Active Substance: MONTELUKAST SODIUM
     Dosage: 0.2 MG, UNK
     Route: 065
  8. MONTELUKAST [Suspect]
     Active Substance: MONTELUKAST SODIUM
     Dosage: 1 MG, UNK
     Route: 065
  9. MONTELUKAST [Suspect]
     Active Substance: MONTELUKAST SODIUM
     Dosage: 10 MG, UNK
     Route: 065

REACTIONS (1)
  - Drug ineffective for unapproved indication [Unknown]
